FAERS Safety Report 18724381 (Version 1)
Quarter: 2021Q1

REPORT INFORMATION
  Report Type: Spontaneous
  Country: FR (occurrence: FR)
  Receive Date: 20210111
  Receipt Date: 20210111
  Transmission Date: 20210419
  Serious: Yes (Other)
  Sender: FDA-Public Use
  Company Number: FR-GLAXOSMITHKLINE-FR2021EME000325

PATIENT
  Sex: Female

DRUGS (1)
  1. LAMICTAL [Suspect]
     Active Substance: LAMOTRIGINE
     Indication: BIPOLAR DISORDER
     Dosage: UNK, 100 MG
     Route: 048
     Dates: start: 2016

REACTIONS (4)
  - Syncope [Unknown]
  - Vertigo [Unknown]
  - Feeling cold [Unknown]
  - Tachycardia [Unknown]
